FAERS Safety Report 21848703 (Version 2)
Quarter: 2023Q1

REPORT INFORMATION
  Report Type: Spontaneous
  Country: US (occurrence: US)
  Receive Date: 20230111
  Receipt Date: 20230127
  Transmission Date: 20230418
  Serious: Yes (Death)
  Sender: FDA-Public Use
  Company Number: US-ALKERMES INC.-ALK-2023-000085

PATIENT
  Age: 25 Year
  Sex: Male

DRUGS (1)
  1. ARISTADA [Suspect]
     Active Substance: ARIPIPRAZOLE LAUROXIL
     Indication: Schizophrenia
     Dosage: 662 MILLIGRAM, QMO
     Route: 030
     Dates: end: 20211116

REACTIONS (2)
  - Injury [Fatal]
  - Road traffic accident [Fatal]

NARRATIVE: CASE EVENT DATE: 20211101
